FAERS Safety Report 16798969 (Version 1)
Quarter: 2019Q3

REPORT INFORMATION
  Report Type: Spontaneous
  Country: US (occurrence: US)
  Receive Date: 20190722
  Receipt Date: 20190722
  Transmission Date: 20191005
  Serious: Yes (Hospitalization)
  Sender: FDA-Public Use
  Company Number: None

PATIENT
  Age: 69 Year
  Sex: Female

DRUGS (1)
  1. CAPECITABINE  500MG TAB [Suspect]
     Active Substance: CAPECITABINE
     Indication: DRUG THERAPY
     Route: 048
     Dates: start: 20190619

REACTIONS (4)
  - Malaise [None]
  - Nausea [None]
  - Pain [None]
  - Constipation [None]

NARRATIVE: CASE EVENT DATE: 20190719
